FAERS Safety Report 4578204-7 (Version None)
Quarter: 2005Q1

REPORT INFORMATION
  Report Type: 
  Country: None (occurrence: None)
  Receive Date: 20050201
  Receipt Date: 20050201
  Transmission Date: 20050727
  Serious: Yes (Other)
  Sender: FDA-Public Use
  Company Number: None

PATIENT
  Age: 52 Year
  Sex: Male

DRUGS (1)
  1. TERAZOSIN  5 MG  CAP [Suspect]
     Dosage: 1 PO Q HS
     Route: 048
     Dates: start: 20040819, end: 20040902

REACTIONS (1)
  - OEDEMA [None]
